FAERS Safety Report 23742625 (Version 2)
Quarter: 2024Q2

REPORT INFORMATION
  Report Type: Other
  Country: IL (occurrence: None)
  Receive Date: 20240415
  Receipt Date: 20240419
  Transmission Date: 20240717
  Serious: Yes (Other)
  Sender: FDA-Public Use
  Company Number: IL-ROCHE-3545775

PATIENT

DRUGS (1)
  1. BEVACIZUMAB [Suspect]
     Active Substance: BEVACIZUMAB
     Indication: Diabetic retinal oedema
     Route: 050

REACTIONS (4)
  - Skin bacterial infection [Unknown]
  - Suspected transmission of an infectious agent via product [Unknown]
  - Off label use [Unknown]
  - Off label use [Unknown]
